FAERS Safety Report 25618831 (Version 1)
Quarter: 2025Q3

REPORT INFORMATION
  Report Type: Spontaneous
  Country: US (occurrence: None)
  Receive Date: 20250729
  Receipt Date: 20250729
  Transmission Date: 20251020
  Serious: Yes (Hospitalization, Other)
  Sender: FDA-CTU
  Company Number: None

PATIENT
  Age: 22 Year
  Sex: Male

DRUGS (1)
  1. RINVOQ [Suspect]
     Active Substance: UPADACITINIB
     Indication: Colitis ulcerative
     Dosage: FREQUENCY : DAILY;?
     Route: 048
     Dates: start: 20250626, end: 20250717

REACTIONS (5)
  - Muscle tightness [None]
  - Gait disturbance [None]
  - Peripheral vein occlusion [None]
  - Pelvic venous thrombosis [None]
  - Vena cava thrombosis [None]

NARRATIVE: CASE EVENT DATE: 20250710
